FAERS Safety Report 18441066 (Version 1)
Quarter: 2020Q4

REPORT INFORMATION
  Report Type: Spontaneous
  Country: BE (occurrence: BE)
  Receive Date: 20201029
  Receipt Date: 20201029
  Transmission Date: 20210114
  Serious: Yes (Death, Life-Threatening, Hospitalization, Other)
  Sender: FDA-Public Use
  Company Number: BE-STRIDES ARCOLAB LIMITED-2020SP012950

PATIENT
  Age: 88 Year
  Sex: Female

DRUGS (3)
  1. METHYLPREDNISOLONE. [Suspect]
     Active Substance: METHYLPREDNISOLONE
     Indication: C-REACTIVE PROTEIN INCREASED
     Dosage: 500 MILLIGRAM
     Route: 042
  2. DARBEPOETIN ALPHA [Concomitant]
     Active Substance: DARBEPOETIN ALFA
     Indication: PRODUCT USED FOR UNKNOWN INDICATION
     Dosage: UNK
     Route: 065
  3. HYDROCORTISONE. [Suspect]
     Active Substance: HYDROCORTISONE
     Indication: PRODUCT USED FOR UNKNOWN INDICATION
     Dosage: 8 MILLIGRAM, QD
     Route: 065

REACTIONS (16)
  - Facial paralysis [Recovered/Resolved]
  - IVth nerve paralysis [Recovered/Resolved]
  - Tympanic membrane perforation [Unknown]
  - Bone erosion [Recovered/Resolved]
  - Pulmonary embolism [Fatal]
  - VIth nerve paralysis [Recovered/Resolved]
  - Otitis media [Recovered/Resolved]
  - Acute sinusitis [Recovered/Resolved]
  - Eye movement disorder [Unknown]
  - Aspergillus infection [Recovered/Resolved]
  - Sinusitis [Recovered/Resolved]
  - Pain [Recovered/Resolved]
  - Orbital apex syndrome [Recovered/Resolved]
  - IIIrd nerve paralysis [Recovered/Resolved]
  - Diplopia [Unknown]
  - Pneumonia staphylococcal [Not Recovered/Not Resolved]
